FAERS Safety Report 25830450 (Version 1)
Quarter: 2025Q3

REPORT INFORMATION
  Report Type: Spontaneous
  Country: US (occurrence: None)
  Receive Date: 20250919
  Receipt Date: 20250919
  Transmission Date: 20251020
  Serious: Yes (Other)
  Sender: FDA-CTU
  Company Number: None

PATIENT
  Age: 29 Year
  Sex: Female
  Weight: 67.5 kg

DRUGS (2)
  1. HYLENEX RECOMBINANT [Suspect]
     Active Substance: HYALURONIDASE (HUMAN RECOMBINANT)
     Indication: Product preparation issue
     Route: 001
     Dates: start: 20250731, end: 20250813
  2. HYLENEX RECOMBINANT [Suspect]
     Active Substance: HYALURONIDASE (HUMAN RECOMBINANT)
     Indication: Product preparation issue
     Route: 001
     Dates: start: 20250731, end: 20250813

REACTIONS (2)
  - Lymphangioma [None]
  - Product solubility abnormal [None]

NARRATIVE: CASE EVENT DATE: 20250804
